FAERS Safety Report 20478543 (Version 1)
Quarter: 2022Q1

REPORT INFORMATION
  Report Type: Spontaneous
  Country: CA (occurrence: CA)
  Receive Date: 20220216
  Receipt Date: 20220216
  Transmission Date: 20220423
  Serious: Yes (Other)
  Sender: FDA-Public Use
  Company Number: None

PATIENT
  Sex: Female

DRUGS (9)
  1. METHOTREXATE [Suspect]
     Active Substance: METHOTREXATE
     Indication: Product used for unknown indication
     Route: 065
  2. ENBREL [Suspect]
     Active Substance: ETANERCEPT
     Indication: Product used for unknown indication
     Route: 065
  3. HUMIRA [Suspect]
     Active Substance: ADALIMUMAB
     Indication: Rheumatoid arthritis
     Route: 058
  4. PENICILLIN G POTASSIUM [Suspect]
     Active Substance: PENICILLIN G POTASSIUM
     Indication: Product used for unknown indication
     Route: 065
  5. SIMPONI [Suspect]
     Active Substance: GOLIMUMAB
     Indication: Product used for unknown indication
     Route: 058
  6. CELEBREX [Concomitant]
     Active Substance: CELECOXIB
     Indication: Product used for unknown indication
  7. HYDROXYCHLOROQUINE [Concomitant]
     Active Substance: HYDROXYCHLOROQUINE
     Indication: Product used for unknown indication
  8. MORPHINE [Concomitant]
     Active Substance: MORPHINE
     Indication: Product used for unknown indication
     Route: 065
  9. TOFACITINIB [Concomitant]
     Active Substance: TOFACITINIB
     Indication: Rheumatoid arthritis
     Dosage: 2 EVERY 1 DAY
     Route: 048

REACTIONS (16)
  - Dermatitis allergic [Unknown]
  - Adverse drug reaction [Unknown]
  - Chills [Unknown]
  - Colitis [Unknown]
  - Drug hypersensitivity [Unknown]
  - Fatigue [Unknown]
  - Feeling hot [Unknown]
  - Headache [Unknown]
  - Injection site pain [Unknown]
  - Joint range of motion decreased [Unknown]
  - Joint swelling [Unknown]
  - Myalgia [Unknown]
  - Nausea [Unknown]
  - Nephrostomy [Unknown]
  - Osteoarthritis [Unknown]
  - Therapeutic product effect incomplete [Unknown]
